FAERS Safety Report 11305346 (Version 1)
Quarter: 2015Q3

REPORT INFORMATION
  Report Type: Spontaneous
  Country: US (occurrence: US)
  Receive Date: 20150723
  Receipt Date: 20150723
  Transmission Date: 20151125
  Serious: No
  Sender: FDA-Public Use
  Company Number: US-JNJFOC-20140900138

PATIENT
  Age: 15 Year
  Sex: Female
  Weight: 73.94 kg

DRUGS (3)
  1. ZYRTEC [Suspect]
     Active Substance: CETIRIZINE HYDROCHLORIDE
     Route: 048
  2. ZYRTEC [Suspect]
     Active Substance: CETIRIZINE HYDROCHLORIDE
     Indication: SINUSITIS
     Dosage: 1 TABLET DAILY, FOR 3 DAYS
     Route: 048
     Dates: start: 20140822, end: 20140824
  3. SALINE DROPS [Concomitant]
     Indication: SINUSITIS
     Route: 045
     Dates: start: 20140822

REACTIONS (2)
  - Ear congestion [Unknown]
  - Product use issue [Unknown]

NARRATIVE: CASE EVENT DATE: 20140822
